FAERS Safety Report 7501673-7 (Version None)
Quarter: 2011Q2

REPORT INFORMATION
  Report Type: 
  Country: None (occurrence: None)
  Receive Date: 20110525
  Receipt Date: 20110518
  Transmission Date: 20111010
  Serious: No
  Sender: FDA-Public Use
  Company Number: US-BAYER-2011-043430

PATIENT
  Age: 77 Year
  Sex: Female

DRUGS (2)
  1. AVELOX [Suspect]
     Indication: BACTERIAL INFECTION
     Dosage: 400 MG, UNK
     Route: 048
     Dates: start: 20110513, end: 20110513
  2. LOPRESSOR [Concomitant]

REACTIONS (4)
  - PAIN [None]
  - INSOMNIA [None]
  - DIARRHOEA [None]
  - ABDOMINAL PAIN UPPER [None]
